FAERS Safety Report 5618412-7 (Version None)
Quarter: 2008Q1

REPORT INFORMATION
  Report Type: 
  Country: None (occurrence: None)
  Receive Date: 20080207
  Receipt Date: 20080128
  Transmission Date: 20080703
  Serious: Yes (Other)
  Sender: FDA-Public Use
  Company Number: DE-ABBOTT-01P-062-0110686-00

PATIENT
  Age: 16 Month
  Sex: Male

DRUGS (4)
  1. DEPAKENE [Suspect]
     Indication: MYOCLONIC EPILEPSY
  2. DEPAKENE [Suspect]
     Indication: LENNOX-GASTAUT SYNDROME
  3. TOPIRAMATE [Suspect]
     Indication: LENNOX-GASTAUT SYNDROME
  4. CARBAMAZEPINE [Concomitant]
     Indication: MYOCLONIC EPILEPSY
     Dosage: NOT REPORTED

REACTIONS (8)
  - ALANINE AMINOTRANSFERASE INCREASED [None]
  - ANOREXIA [None]
  - APATHY [None]
  - ASPARTATE AMINOTRANSFERASE INCREASED [None]
  - COAGULATION FACTOR DECREASED [None]
  - DRUG INEFFECTIVE [None]
  - HYPERAMMONAEMIA [None]
  - PYREXIA [None]
